FAERS Safety Report 25662396 (Version 1)
Quarter: 2025Q3

REPORT INFORMATION
  Report Type: Spontaneous
  Country: US (occurrence: US)
  Receive Date: 20250810
  Receipt Date: 20250810
  Transmission Date: 20251020
  Serious: Yes (Other)
  Sender: PRINSTON PHARMACEUTICAL
  Company Number: US-PRINSTON PHARMACEUTICAL INC.-2025PRN00251

PATIENT
  Sex: Female
  Weight: 55.329 kg

DRUGS (5)
  1. DONEPEZIL HYDROCHLORIDE [Suspect]
     Active Substance: DONEPEZIL HYDROCHLORIDE
     Indication: Brain fog
     Dosage: ONE TABLET (5 MG), 1X/DAY (AT BED TIME)
     Route: 048
     Dates: start: 20250525
  2. IRBESARTAN AND HYDROCHLOROTHIAZIDE [Suspect]
     Active Substance: HYDROCHLOROTHIAZIDE\IRBESARTAN
     Dates: start: 20250609
  3. Compound Thyroid Medication [Concomitant]
  4. KEPPRA [Concomitant]
     Active Substance: LEVETIRACETAM
     Dates: start: 202110
  5. GABAPENTIN [Concomitant]
     Active Substance: GABAPENTIN
     Dates: start: 202110

REACTIONS (9)
  - Coeliac disease [Not Recovered/Not Resolved]
  - Visual impairment [Not Recovered/Not Resolved]
  - Abdominal discomfort [Not Recovered/Not Resolved]
  - Dry eye [Not Recovered/Not Resolved]
  - Weight decreased [Not Recovered/Not Resolved]
  - Muscle spasms [Not Recovered/Not Resolved]
  - Nausea [Not Recovered/Not Resolved]
  - Diarrhoea [Recovering/Resolving]
  - Off label use [Unknown]

NARRATIVE: CASE EVENT DATE: 20250101
